FAERS Safety Report 9058791 (Version 1)
Quarter: 2013Q1

REPORT INFORMATION
  Report Type: Spontaneous
  Country: US (occurrence: US)
  Receive Date: 20130204
  Receipt Date: 20130204
  Transmission Date: 20140127
  Serious: Yes (Other)
  Sender: FDA-Public Use
  Company Number: PHEH2013US002621

PATIENT
  Sex: Male

DRUGS (2)
  1. TEKTURNA [Suspect]
     Indication: BLOOD PRESSURE
     Dosage: 300 MG, QD
     Route: 048
  2. TEKTURNA [Suspect]
     Dosage: 150 MG, BID
     Route: 048

REACTIONS (2)
  - Meniscus injury [Unknown]
  - Fall [Unknown]
